FAERS Safety Report 25805253 (Version 3)
Quarter: 2025Q4

REPORT INFORMATION
  Report Type: Report from Study
  Country: US (occurrence: US)
  Receive Date: 20250916
  Receipt Date: 20251219
  Transmission Date: 20260118
  Serious: Yes (Life-Threatening, Hospitalization)
  Sender: RECORDATI
  Company Number: US-ORPHANEU-2025006466

PATIENT
  Sex: Female
  Weight: 83.9 kg

DRUGS (14)
  1. ISTURISA [Suspect]
     Active Substance: OSILODROSTAT PHOSPHATE
     Indication: Cushing^s syndrome
     Dosage: 2 MG, BID
     Route: 048
     Dates: start: 20250728, end: 20250815
  2. ISTURISA [Suspect]
     Active Substance: OSILODROSTAT PHOSPHATE
     Dosage: 2 MG, BID
     Route: 048
     Dates: start: 202508, end: 20250829
  3. ISTURISA [Suspect]
     Active Substance: OSILODROSTAT PHOSPHATE
     Dosage: 2 MG, BID
     Route: 048
     Dates: start: 2025, end: 2025
  4. CEFEPIME [Suspect]
     Active Substance: CEFEPIME HYDROCHLORIDE
     Indication: Localised infection
     Dosage: VIA PICC LINE
     Route: 042
     Dates: start: 20250811
  5. DAPTOMYCIN [Suspect]
     Active Substance: DAPTOMYCIN
     Indication: Localised infection
     Dosage: PICC LINE
     Route: 042
     Dates: start: 20250811
  6. ATORVASTATIN CALCIUM [Concomitant]
     Active Substance: ATORVASTATIN CALCIUM
     Indication: Product used for unknown indication
     Dosage: 40 MG, QD (AT BEDTIME), TABLET 40
     Route: 048
     Dates: start: 20250701
  7. FERROUS SULFATE [Concomitant]
     Active Substance: FERROUS SULFATE
     Indication: Product used for unknown indication
     Dosage: 324 (65 FE) EVERY MORNING (QAM), TABLET DELAYED
     Route: 048
     Dates: start: 20250701
  8. OZEMPIC [Concomitant]
     Active Substance: SEMAGLUTIDE
     Indication: Product used for unknown indication
     Dosage: 2 MG/1.5ML WEEKLY (1 MG/DOSE), SOLUTION
     Route: 058
     Dates: start: 20250701
  9. METOPROLOL TARTRATE [Concomitant]
     Active Substance: METOPROLOL TARTRATE
     Indication: Product used for unknown indication
     Dosage: 100 MG, BID, TABLET 100
     Route: 048
     Dates: start: 20250701
  10. SPIRONOLACTONE [Concomitant]
     Active Substance: SPIRONOLACTONE
     Indication: Product used for unknown indication
     Dosage: 50 MG, BID, TABLET 50 MG
     Route: 048
     Dates: start: 20250701
  11. FUROSEMIDE [Concomitant]
     Active Substance: FUROSEMIDE
     Indication: Product used for unknown indication
     Dosage: DAILY, PRN, TABLET 40 MG
     Route: 048
     Dates: start: 20250701
  12. LOSARTAN POTASSIUM [Concomitant]
     Active Substance: LOSARTAN POTASSIUM
     Indication: Product used for unknown indication
     Dosage: 100 MG, QD, TABLET 100
     Route: 048
     Dates: start: 20250701
  13. HUMULIN R [Concomitant]
     Active Substance: INSULIN HUMAN
     Indication: Product used for unknown indication
     Dosage: 12 UNITS, BID, U-500 KWIKPEN
     Route: 058
     Dates: start: 20250701
  14. ALKINDI SPRINKLE [Concomitant]
     Active Substance: HYDROCORTISONE
     Indication: Product used for unknown indication
     Dosage: 15 MG DAILY (CAPSULE 5 MG)
     Route: 048
     Dates: end: 20250827

REACTIONS (11)
  - Renal impairment [Recovered/Resolved]
  - Urine output decreased [Recovered/Resolved]
  - Acidosis [Recovered/Resolved]
  - Systemic toxicity [Recovered/Resolved]
  - Gait inability [Recovered/Resolved]
  - Septic shock [Unknown]
  - Pneumonia [Unknown]
  - Confusional state [Recovered/Resolved]
  - Asthenia [Recovered/Resolved]
  - Decreased appetite [Recovered/Resolved]
  - Cortisol decreased [Unknown]

NARRATIVE: CASE EVENT DATE: 20250101
